FAERS Safety Report 7310908-5 (Version None)
Quarter: 2011Q1

REPORT INFORMATION
  Report Type: 
  Country: None (occurrence: None)
  Receive Date: 20110224
  Receipt Date: 20110216
  Transmission Date: 20110831
  Serious: Yes (Hospitalization, Other)
  Sender: FDA-Public Use
  Company Number: DE-BAXTER-2011BH002641

PATIENT
  Age: 45 Year
  Sex: Female
  Weight: 65 kg

DRUGS (6)
  1. FLUOROURACIL [Suspect]
     Indication: BREAST CANCER
     Route: 042
     Dates: start: 20110110, end: 20110110
  2. UROMITEXAN BAXTER [Suspect]
     Indication: PREMEDICATION
     Route: 042
     Dates: start: 20110110, end: 20110110
  3. EPIRUBICIN HYDROCHLORIDE [Suspect]
     Indication: BREAST CANCER
     Route: 042
     Dates: start: 20110110, end: 20110110
  4. DEXAMETHASONE [Suspect]
     Indication: PREMEDICATION
     Route: 042
     Dates: start: 20110110, end: 20110113
  5. EMEND [Suspect]
     Indication: PREMEDICATION
     Route: 048
     Dates: start: 20110110, end: 20110112
  6. CYCLOPHOSPHAMIDE [Suspect]
     Indication: BREAST CANCER
     Route: 042
     Dates: start: 20110110, end: 20110110

REACTIONS (2)
  - HYPONATRAEMIA [None]
  - EPILEPSY [None]
